FAERS Safety Report 19020139 (Version 1)
Quarter: 2021Q1

REPORT INFORMATION
  Report Type: Spontaneous
  Country: US (occurrence: US)
  Receive Date: 20210317
  Receipt Date: 20210317
  Transmission Date: 20210420
  Serious: No
  Sender: FDA-Public Use
  Company Number: US-BAYER-2021-104031

PATIENT
  Sex: Female

DRUGS (2)
  1. MIRALAX [Suspect]
     Active Substance: POLYETHYLENE GLYCOL 3350
     Indication: GASTROINTESTINAL INFECTION
     Dosage: 3 DF, QD
     Route: 048
     Dates: start: 201912
  2. LINZESS [Concomitant]
     Active Substance: LINACLOTIDE

REACTIONS (3)
  - Abdominal distension [None]
  - Drug ineffective [None]
  - Abdominal pain [None]
